FAERS Safety Report 10110068 (Version 2)
Quarter: 2014Q4

REPORT INFORMATION
  Report Type: Other
  Country: US (occurrence: US)
  Receive Date: 20140425
  Receipt Date: 20141210
  Transmission Date: 20150528
  Serious: Yes (Hospitalization, Other)
  Sender: FDA-Public Use
  Company Number: US-GSKPPD-2014GSK008210

PATIENT
  Age: 65 Year
  Sex: Female

DRUGS (7)
  1. CLOPIDOGREL [Concomitant]
     Active Substance: CLOPIDOGREL BISULFATE
  2. ASPIRIN. [Concomitant]
     Active Substance: ASPIRIN
  3. NITROGLYCERIN. [Concomitant]
     Active Substance: NITROGLYCERIN
     Dosage: Q5 MINUTES X3 PRN CHEST PAIN
     Route: 060
  4. TRIAMTERENE. [Concomitant]
     Active Substance: TRIAMTERENE
  5. AVANDIA [Suspect]
     Active Substance: ROSIGLITAZONE MALEATE
     Indication: DIABETES MELLITUS
     Dosage: AVANDIA WAS NOT LISTED AMONG THE PATIENTS DISCHARGE
     Route: 048
  6. QUINAPRIL HYDROCHLORIDE. [Concomitant]
     Active Substance: QUINAPRIL HYDROCHLORIDE
  7. ATENOLOL. [Concomitant]
     Active Substance: ATENOLOL

REACTIONS (1)
  - Acute myocardial infarction [Recovered/Resolved]

NARRATIVE: CASE EVENT DATE: 20110115
